FAERS Safety Report 9552389 (Version 1)
Quarter: 2013Q3

REPORT INFORMATION
  Report Type: Spontaneous
  Country: US (occurrence: None)
  Receive Date: 20130724
  Receipt Date: 20130724
  Transmission Date: 20140515
  Serious: Yes (Other)
  Sender: FDA-Public Use
  Company Number: PHEH2013US001972

PATIENT
  Sex: Male

DRUGS (1)
  1. GLEEVEC (IMATINIB) [Suspect]
     Route: 048
     Dates: start: 20101215

REACTIONS (5)
  - Cataract [None]
  - Immune system disorder [None]
  - Influenza [None]
  - Nasopharyngitis [None]
  - Malaise [None]
